FAERS Safety Report 9800395 (Version 1)
Quarter: 2014Q1

REPORT INFORMATION
  Report Type: Spontaneous
  Country: NL (occurrence: NL)
  Receive Date: 20140107
  Receipt Date: 20140107
  Transmission Date: 20141002
  Serious: Yes (Death)
  Sender: FDA-Public Use
  Company Number: NL-AMGEN-NLDSP2013091734

PATIENT
  Age: 77 Year
  Sex: Male

DRUGS (12)
  1. XGEVA [Suspect]
     Indication: PRODUCT USED FOR UNKNOWN INDICATION
     Dosage: UNK UNK, Q4WK
     Route: 058
     Dates: start: 20131114
  2. CALCICHEW D3 [Concomitant]
     Dosage: 500 MG/400 IE
  3. OMEPRAZ [Concomitant]
     Dosage: 20 MG, UNK
  4. METOCLOPRAMIDE HCL [Concomitant]
     Dosage: 10 MG, UNK
  5. CARBASALATE CALCIUM [Concomitant]
     Dosage: 100 MG, UNK
  6. FERROFUMARAAT [Concomitant]
     Dosage: 200 MG, UNK
  7. LISINOPRIL/HYDROCHLOROTHIAZIDE [Concomitant]
     Dosage: 30/12.5
  8. SIMVASTATIN [Concomitant]
     Dosage: 40 MG, UNK
  9. ARTHROTEC [Concomitant]
     Dosage: 50 MG, UNK
  10. NAPROXEN [Concomitant]
     Dosage: 250 MG, UNK
  11. PARACETAMOL/CODEINE [Concomitant]
     Dosage: 500/10
  12. PAROXETINE MESILATE [Concomitant]
     Dosage: 20 MG, UNK

REACTIONS (1)
  - Death [Fatal]
